FAERS Safety Report 26071573 (Version 1)
Quarter: 2025Q4

REPORT INFORMATION
  Report Type: Spontaneous
  Country: US (occurrence: None)
  Receive Date: 20251120
  Receipt Date: 20251120
  Transmission Date: 20260118
  Serious: Yes (Other)
  Sender: FDA-CTU
  Company Number: None

PATIENT
  Sex: Female

DRUGS (11)
  1. ORENCIA [Suspect]
     Active Substance: ABATACEPT
     Indication: Immunodeficiency common variable
     Dosage: FREQUENCY : WEEKLY;?
     Route: 058
     Dates: start: 20161228
  2. ATORVASTATIN [Concomitant]
     Active Substance: ATORVASTATIN
  3. BIOTIN TAB 300MCG [Concomitant]
  4. CUVITRU [Concomitant]
     Active Substance: HUMAN IMMUNOGLOBULIN G
  5. CYMBALTA CAP 30MG [Concomitant]
  6. ELIQUIS [Concomitant]
     Active Substance: APIXABAN
  7. GABAPENTIN TAB 600MG [Concomitant]
  8. LEVOTHYROXIN TAB 150MCG [Concomitant]
  9. MAGNESIUM TAB 500MG [Concomitant]
  10. METOPROL TAR TAB 50MG [Concomitant]
  11. MULTIVITAMN TAB MINERALS [Concomitant]

REACTIONS (2)
  - Skin cancer [None]
  - Treatment delayed [None]
